FAERS Safety Report 26120277 (Version 1)
Quarter: 2025Q4

REPORT INFORMATION
  Report Type: Spontaneous
  Country: US (occurrence: US)
  Receive Date: 20251204
  Receipt Date: 20251204
  Transmission Date: 20260117
  Serious: No
  Sender: ABBVIE
  Company Number: US-ABBVIE-6573434

PATIENT
  Sex: Female

DRUGS (1)
  1. RESTASIS [Suspect]
     Active Substance: CYCLOSPORINE
     Indication: Dry eye
     Route: 047

REACTIONS (10)
  - Eye disorder [Unknown]
  - Eye pain [Unknown]
  - Foreign body in eye [Unknown]
  - Back disorder [Unknown]
  - Road traffic accident [Unknown]
  - Malaise [Unknown]
  - Head discomfort [Unknown]
  - Cystitis [Unknown]
  - Bladder pain [Unknown]
  - Arthritis [Unknown]
